FAERS Safety Report 4920170-6 (Version None)
Quarter: 2006Q1

REPORT INFORMATION
  Report Type: 
  Country: None (occurrence: None)
  Receive Date: 20060223
  Receipt Date: 20060109
  Transmission Date: 20060701
  Serious: Yes (Hospitalization, Other)
  Sender: FDA-Public Use
  Company Number: PHEH2006US00772

PATIENT
  Age: 87 Year
  Sex: Male

DRUGS (1)
  1. GLEEVEC [Suspect]
     Indication: CHRONIC MYELOID LEUKAEMIA
     Dosage: 400 MG, QD
     Route: 048
     Dates: start: 20051212

REACTIONS (5)
  - ABDOMINAL PAIN [None]
  - BLADDER CANCER RECURRENT [None]
  - BLOOD CREATININE INCREASED [None]
  - ILEUS [None]
  - RENAL IMPAIRMENT [None]
